FAERS Safety Report 6069431-0 (Version None)
Quarter: 2009Q1

REPORT INFORMATION
  Report Type: 
  Country: None (occurrence: None)
  Receive Date: 20090206
  Receipt Date: 20090129
  Transmission Date: 20090719
  Serious: Yes (Other)
  Sender: FDA-Public Use
  Company Number: GB-PFIZER INC-2009162702

PATIENT

DRUGS (3)
  1. LYRICA [Suspect]
     Route: 048
  2. LITHIUM [Concomitant]
  3. ANTIPSYCHOTICS [Concomitant]

REACTIONS (6)
  - CEREBROVASCULAR ACCIDENT [None]
  - DIZZINESS [None]
  - HYPERSENSITIVITY [None]
  - HYPOTENSION [None]
  - PALLOR [None]
  - SKIN DISCOLOURATION [None]
